FAERS Safety Report 6418583-9 (Version None)
Quarter: 2009Q4

REPORT INFORMATION
  Report Type: 
  Country: None (occurrence: None)
  Receive Date: 20091028
  Receipt Date: 20091015
  Transmission Date: 20100525
  Serious: Yes (Other)
  Sender: FDA-Public Use
  Company Number: PHHY2009IL44989

PATIENT
  Sex: Female
  Weight: 60 kg

DRUGS (1)
  1. ACLASTA [Suspect]
     Indication: OSTEOPOROSIS
     Dosage: 5 MG, UNK
     Route: 042
     Dates: start: 20091001

REACTIONS (11)
  - BLINDNESS [None]
  - EYE PAIN [None]
  - EYELID OEDEMA [None]
  - HEADACHE [None]
  - LACRIMATION INCREASED [None]
  - MYALGIA [None]
  - OCULAR HYPERAEMIA [None]
  - PHOTOPHOBIA [None]
  - PYREXIA [None]
  - UVEITIS [None]
  - VISION BLURRED [None]
